FAERS Safety Report 10440789 (Version 1)
Quarter: 2014Q3

REPORT INFORMATION
  Report Type: Spontaneous
  Country: US (occurrence: None)
  Receive Date: 20140905
  Receipt Date: 20140905
  Transmission Date: 20150326
  Serious: Yes (Other)
  Sender: FDA-Public Use
  Company Number: None

PATIENT
  Age: 44 Year
  Sex: Male
  Weight: 122.47 kg

DRUGS (1)
  1. ADDERALL XR [Suspect]
     Active Substance: AMPHETAMINE ASPARTATE\AMPHETAMINE SULFATE\DEXTROAMPHETAMINE SACCHARATE\DEXTROAMPHETAMINE SULFATE
     Indication: PRODUCT USED FOR UNKNOWN INDICATION
     Dosage: 1 PILL IN AFTERNOON ONCE DAILY TAKEN BY MOUTH
     Route: 048
     Dates: start: 20140904, end: 20140904

REACTIONS (5)
  - Abdominal pain upper [None]
  - Malaise [None]
  - Product substitution issue [None]
  - Palpitations [None]
  - Product quality issue [None]

NARRATIVE: CASE EVENT DATE: 20140904
